FAERS Safety Report 23800887 (Version 1)
Quarter: 2024Q2

REPORT INFORMATION
  Report Type: Report from Study
  Country: GB (occurrence: GB)
  Receive Date: 20240430
  Receipt Date: 20240430
  Transmission Date: 20240716
  Serious: Yes (Other)
  Sender: FDA-Public Use
  Company Number: GB-SHIONOGI, INC-2024001032

PATIENT

DRUGS (1)
  1. FETROJA [Suspect]
     Active Substance: CEFIDEROCOL SULFATE TOSYLATE
     Indication: Enterobacter infection
     Dosage: 2 G, 1 PER 8 HOUR (INFUSION TIME 3 HOURS
     Route: 065
     Dates: start: 20210331, end: 20210504

REACTIONS (2)
  - Eosinophilic pneumonia [Recovered/Resolved]
  - Rash [Recovered/Resolved]

NARRATIVE: CASE EVENT DATE: 20210503
